FAERS Safety Report 13365731 (Version 1)
Quarter: 2017Q1

REPORT INFORMATION
  Report Type: Spontaneous
  Country: US (occurrence: US)
  Receive Date: 20170323
  Receipt Date: 20170323
  Transmission Date: 20170429
  Serious: No
  Sender: FDA-Public Use
  Company Number: US-ALLERGAN-2016-002072

PATIENT
  Age: 74 Year
  Sex: Female
  Weight: 55.78 kg

DRUGS (4)
  1. ESTRACE [Suspect]
     Active Substance: ESTRADIOL
     Indication: CYSTITIS
  2. COZAAR [Concomitant]
     Active Substance: LOSARTAN POTASSIUM
     Indication: HYPERTENSION
     Dosage: UNK
     Route: 048
  3. ESTRACE [Suspect]
     Active Substance: ESTRADIOL
     Indication: VAGINAL DISORDER
     Dosage: 1 GRAM AT NIGHT 3 TIMES WEEKLY, THEN TWICE WEEKLY
     Route: 067
     Dates: start: 201606, end: 2016
  4. ESTRACE [Suspect]
     Active Substance: ESTRADIOL
     Indication: SEXUAL DYSFUNCTION

REACTIONS (2)
  - Drug ineffective [Recovered/Resolved]
  - Application site discharge [Recovered/Resolved]

NARRATIVE: CASE EVENT DATE: 201606
